FAERS Safety Report 8001827 (Version 4)
Quarter: 2012Q4

REPORT INFORMATION
  Report Type: Report from Study
  Country: GB (occurrence: GB)
  Receive Date: 20110623
  Receipt Date: 20121022
  Transmission Date: 20130627
  Serious: Yes (Hospitalization)
  Sender: FDA-Public Use
  Company Number: GB-SANOFI-AVENTIS-F01200700067

PATIENT
  Age: 47 Year
  Sex: Female
  Weight: 67 kg

DRUGS (18)
  1. OXALIPLATIN [Suspect]
     Indication: COLON CARCINOMA
     Dosage: Unit dose: 130 mg/m2
10.4762 mg
     Route: 042
     Dates: start: 20061214
  2. OXALIPLATIN [Suspect]
     Indication: COLON CARCINOMA
     Route: 042
     Dates: end: 20070126
  3. OXALIPLATIN [Suspect]
     Indication: COLON CARCINOMA
     Route: 042
  4. CAPECITABINE [Suspect]
     Indication: COLON CARCINOMA
     Dosage: Unit dose: 1000 mg/m2
     Route: 048
     Dates: start: 20061214, end: 20070108
  5. CAPECITABINE [Suspect]
     Indication: COLON CARCINOMA
     Route: 048
     Dates: end: 20070130
  6. CAPECITABINE [Suspect]
     Indication: COLON CARCINOMA
     Route: 048
     Dates: start: 20070201
  7. BEVACIZUMAB [Suspect]
     Indication: COLON CARCINOMA
     Route: 042
  8. BEVACIZUMAB [Suspect]
     Indication: COLON CARCINOMA
     Dosage: Unit dose: 100 mg
     Route: 042
     Dates: start: 20061214
  9. BEVACIZUMAB [Suspect]
     Indication: COLON CARCINOMA
     Route: 042
     Dates: end: 20070126
  10. CETUXIMAB [Suspect]
     Indication: DRUG USE FOR UNKNOWN INDICATION
     Dosage: form: infusion
     Route: 065
  11. ASPIRIN [Suspect]
     Indication: DRUG USE FOR UNKNOWN INDICATION
     Route: 065
     Dates: start: 2007, end: 20070116
  12. DEXAMETHASONE [Concomitant]
  13. METOCLOPRAMIDE [Concomitant]
  14. LOPERAMIDE [Concomitant]
  15. LANSOPRAZOLE [Concomitant]
  16. LORAZEPAM [Concomitant]
  17. BENDROFLUAZIDE [Concomitant]
     Dates: start: 20070126
  18. FLUCLOXACILLIN [Concomitant]
     Dates: start: 200701, end: 200701

REACTIONS (3)
  - Throat tightness [Recovered/Resolved]
  - Faeces discoloured [Recovered/Resolved]
  - Vomiting [Recovered/Resolved]
